FAERS Safety Report 7650666-8 (Version None)
Quarter: 2011Q3

REPORT INFORMATION
  Report Type: 
  Country: None (occurrence: None)
  Receive Date: 20110802
  Receipt Date: 20110727
  Transmission Date: 20111222
  Serious: Yes (Death)
  Sender: FDA-Public Use
  Company Number: PHHY2011PL67680

PATIENT
  Age: 4 Year
  Sex: Male

DRUGS (5)
  1. TACROLIMUS [Suspect]
     Indication: STEM CELL TRANSPLANT
     Dosage: 3 MG DAILY
  2. GLUCOCORTICOIDS [Concomitant]
     Dosage: UNK
  3. MYCOPHENOLATE MOFETIL [Concomitant]
     Dosage: UNK
  4. METHYLPREDNISOLONE [Concomitant]
     Dosage: 1 MG/KG, UNK
  5. CYCLOSPORINE [Suspect]
     Indication: STEM CELL TRANSPLANT
     Dosage: UNK

REACTIONS (8)
  - CEREBROVASCULAR INSUFFICIENCY [None]
  - STRABISMUS [None]
  - NEUROLOGICAL SYMPTOM [None]
  - DRUG INEFFECTIVE [None]
  - CONVULSION [None]
  - HEMIPLEGIA [None]
  - ALTERED STATE OF CONSCIOUSNESS [None]
  - DYSPNOEA [None]
